FAERS Safety Report 12226765 (Version 2)
Quarter: 2016Q2

REPORT INFORMATION
  Report Type: Report from Study
  Country: DE (occurrence: DE)
  Receive Date: 20160331
  Receipt Date: 20160616
  Transmission Date: 20160815
  Serious: Yes (Hospitalization, Other)
  Sender: FDA-Public Use
  Company Number: DE-ABBVIE-16K-062-1592451-00

PATIENT
  Age: 50 Year
  Sex: Male

DRUGS (2)
  1. HUMIRA [Suspect]
     Active Substance: ADALIMUMAB
     Indication: CROHN^S DISEASE
     Route: 058
  2. CLEXANE [Concomitant]
     Active Substance: ENOXAPARIN SODIUM
     Indication: THROMBOSIS PROPHYLAXIS
     Route: 058

REACTIONS (6)
  - Lymphadenitis [Unknown]
  - Pulmonary sarcoidosis [Unknown]
  - Hospitalisation [Unknown]
  - Sinus node dysfunction [Unknown]
  - Pulmonary mass [Unknown]
  - Pulmonary granuloma [Unknown]

NARRATIVE: CASE EVENT DATE: 201603
